FAERS Safety Report 20129536 (Version 1)
Quarter: 2021Q4

REPORT INFORMATION
  Report Type: Spontaneous
  Country: ES (occurrence: ES)
  Receive Date: 20211130
  Receipt Date: 20211130
  Transmission Date: 20220303
  Serious: Yes (Life-Threatening, Hospitalization, Other)
  Sender: FDA-Public Use
  Company Number: None

PATIENT
  Age: 47 Year
  Sex: Female

DRUGS (5)
  1. VENLAFAXINE [Suspect]
     Active Substance: VENLAFAXINE HYDROCHLORIDE
     Indication: Product used for unknown indication
     Dosage: 7500 MILLIGRAM, TOTAL
     Route: 048
     Dates: start: 20210929, end: 20210929
  2. TIANEPTINE SODIUM [Suspect]
     Active Substance: TIANEPTINE SODIUM
     Indication: Product used for unknown indication
     Dosage: 875 MILLIGRAM, TOTAL
     Route: 048
     Dates: start: 20210929, end: 20210929
  3. CLONAZEPAM [Suspect]
     Active Substance: CLONAZEPAM
     Indication: Product used for unknown indication
     Dosage: 360 MILLIGRAM, TOTAL
     Route: 048
     Dates: start: 20210929, end: 20210929
  4. VENLAFAXINA                        /01233801/ [Concomitant]
     Indication: Borderline personality disorder
     Dosage: 300 MILLIGRAM, QD, 2 COMPRIMIDOS POR LA MANANA
     Route: 048
     Dates: start: 20150907
  5. TIANEPTINE SODIUM [Concomitant]
     Active Substance: TIANEPTINE SODIUM
     Indication: Borderline personality disorder
     Dosage: 12.5 MILLIGRAM, Q8H, 1 COMPRIMIDO CADA 8 HORAS
     Route: 048
     Dates: start: 20191206

REACTIONS (3)
  - Respiratory failure [Recovered/Resolved]
  - Depressed level of consciousness [Recovering/Resolving]
  - Suicide attempt [Unknown]

NARRATIVE: CASE EVENT DATE: 20210929
